FAERS Safety Report 6694651-1 (Version None)
Quarter: 2010Q2

REPORT INFORMATION
  Report Type: 
  Country: None (occurrence: None)
  Receive Date: 20100423
  Receipt Date: 20100329
  Transmission Date: 20101027
  Serious: Yes (Hospitalization)
  Sender: FDA-Public Use
  Company Number: GXKR2010GB03684

PATIENT
  Age: 41 Year
  Sex: Female

DRUGS (5)
  1. FILGRASTIM (NGX) [Suspect]
  2. FLUDARABINE (NGX) [Suspect]
     Route: 065
  3. CYTARABINE [Suspect]
  4. DASATINIB [Suspect]
     Dosage: 140 MG, QD
     Dates: start: 20100111
  5. IDARUBICIN HCL [Suspect]

REACTIONS (3)
  - FEBRILE NEUTROPENIA [None]
  - PULMONARY MASS [None]
  - RASH [None]
